FAERS Safety Report 8963311 (Version 4)
Quarter: 2013Q3

REPORT INFORMATION
  Report Type: Spontaneous
  Country: US (occurrence: US)
  Receive Date: 20121214
  Receipt Date: 20130828
  Transmission Date: 20140515
  Serious: Yes (Hospitalization, Other)
  Sender: FDA-Public Use
  Company Number: US-SANOFI-AVENTIS-2012SA089513

PATIENT
  Age: 80 Year
  Sex: Female

DRUGS (3)
  1. AMBIEN [Suspect]
     Indication: SLEEP DISORDER
     Route: 048
     Dates: start: 1988
  2. OXAZEPAM [Suspect]
     Route: 065
  3. VICODIN [Concomitant]

REACTIONS (33)
  - Cerebral haemorrhage [Unknown]
  - Myocardial infarction [Unknown]
  - Cardiac disorder [Unknown]
  - Cerebrovascular accident [Unknown]
  - Adverse event [Unknown]
  - Malaise [Unknown]
  - Balance disorder [Unknown]
  - Fall [Unknown]
  - Gait disturbance [Unknown]
  - Head injury [Unknown]
  - Lip injury [Unknown]
  - Loss of consciousness [Unknown]
  - Face injury [Unknown]
  - Malaise [Unknown]
  - Nasopharyngitis [Unknown]
  - Back pain [Recovering/Resolving]
  - Unevaluable event [Unknown]
  - Fibromyalgia [Unknown]
  - Arthralgia [Unknown]
  - Crying [Unknown]
  - Incorrect drug administration duration [Unknown]
  - Therapeutic response unexpected [Unknown]
  - Wrong technique in drug usage process [Unknown]
  - Somnolence [Unknown]
  - Eye disorder [Unknown]
  - Dysarthria [Unknown]
  - Dizziness [Unknown]
  - Vision blurred [Unknown]
  - Headache [Unknown]
  - Mood swings [Unknown]
  - Depression [Unknown]
  - Tremor [Unknown]
  - Fatigue [Unknown]
